FAERS Safety Report 5324994-5 (Version None)
Quarter: 2007Q2

REPORT INFORMATION
  Report Type: 
  Country: None (occurrence: None)
  Receive Date: 20070515
  Receipt Date: 20070426
  Transmission Date: 20071010
  Serious: Yes (Hospitalization)
  Sender: FDA-Public Use
  Company Number: US-AMGEN-KDL212958

PATIENT
  Sex: Female
  Weight: 65.4 kg

DRUGS (6)
  1. NEULASTA [Suspect]
     Indication: CHEMOTHERAPY
     Route: 058
     Dates: start: 20050901, end: 20051202
  2. CYTOXAN [Concomitant]
     Dates: start: 20050831, end: 20051011
  3. TAXOL [Concomitant]
     Route: 065
     Dates: start: 20051108, end: 20051201
  4. RADIATION THERAPY [Concomitant]
     Route: 065
     Dates: start: 20051201, end: 20060301
  5. ZOLADEX [Concomitant]
     Route: 065
     Dates: start: 20050831, end: 20050927
  6. PROCRIT [Concomitant]
     Route: 065
     Dates: start: 20051011, end: 20051215

REACTIONS (5)
  - DEHYDRATION [None]
  - MUSCULAR WEAKNESS [None]
  - PSEUDOMONAL BACTERAEMIA [None]
  - SOFT TISSUE DISORDER [None]
  - STAPHYLOCOCCAL SEPSIS [None]
